FAERS Safety Report 16083183 (Version 1)
Quarter: 2019Q1

REPORT INFORMATION
  Report Type: Spontaneous
  Country: FI (occurrence: FI)
  Receive Date: 20190318
  Receipt Date: 20190318
  Transmission Date: 20190418
  Serious: Yes (Disabling)
  Sender: FDA-Public Use
  Company Number: FI-HORIZON-VIM-0133-2019

PATIENT
  Age: 62 Year
  Sex: Female

DRUGS (4)
  1. VIMOVO [Suspect]
     Active Substance: ESOMEPRAZOLE MAGNESIUM\NAPROXEN
     Indication: INFLAMMATION
     Dosage: 2 DF DAILY
     Route: 048
     Dates: start: 20181112, end: 20181118
  2. SERETIDE [Concomitant]
     Active Substance: FLUTICASONE PROPIONATE\SALMETEROL XINAFOATE
     Indication: ASTHMA
     Dosage: 2 DF DAILY
     Route: 055
     Dates: start: 1999
  3. CITALOPRAM [Concomitant]
     Active Substance: CITALOPRAM HYDROBROMIDE
     Indication: FATIGUE
     Dosage: 40 MG DAILY
     Route: 048
     Dates: start: 2017
  4. PERSANTINE [Concomitant]
     Active Substance: DIPYRIDAMOLE
     Dosage: 400 MG DAILY
     Route: 048
     Dates: start: 2017

REACTIONS (10)
  - Visual impairment [Recovered/Resolved with Sequelae]
  - Rash pruritic [Recovered/Resolved with Sequelae]
  - Vomiting [Recovered/Resolved with Sequelae]
  - Photophobia [Recovered/Resolved with Sequelae]
  - Insomnia [Recovered/Resolved with Sequelae]
  - Rash [Recovered/Resolved with Sequelae]
  - Secretion discharge [Recovered/Resolved with Sequelae]
  - Headache [Recovered/Resolved with Sequelae]
  - Anxiety [Recovered/Resolved with Sequelae]
  - Sinus pain [Recovered/Resolved with Sequelae]

NARRATIVE: CASE EVENT DATE: 201811
